FAERS Safety Report 6157477-3 (Version None)
Quarter: 2009Q2

REPORT INFORMATION
  Report Type: 
  Country: None (occurrence: None)
  Receive Date: 20090416
  Receipt Date: 20090408
  Transmission Date: 20091009
  Serious: Yes (Other)
  Sender: FDA-Public Use
  Company Number: PHHY2009GB10460

PATIENT
  Sex: Male
  Weight: 59 kg

DRUGS (4)
  1. EXELON [Suspect]
     Indication: DEMENTIA WITH LEWY BODIES
     Dosage: 4.6 MG/24HRS
     Route: 062
     Dates: start: 20081230
  2. STALEVO 100 [Concomitant]
     Indication: PARKINSON'S DISEASE
     Dosage: 100/2.5 MG, QDS
     Dates: start: 20080808
  3. ASPIRIN [Concomitant]
     Dosage: 75 MG DAILY
     Route: 048
     Dates: start: 20080808
  4. SENNA [Concomitant]
     Dosage: 15 MG DAILY
     Route: 048
     Dates: start: 20080808

REACTIONS (4)
  - AGGRESSION [None]
  - AGITATION [None]
  - DELIRIUM [None]
  - RESTLESSNESS [None]
